FAERS Safety Report 9870179 (Version 3)
Quarter: 2015Q1

REPORT INFORMATION
  Report Type: Spontaneous
  Country: US (occurrence: US)
  Receive Date: 20140205
  Receipt Date: 20150203
  Transmission Date: 20150721
  Serious: Yes (Death, Hospitalization, Other)
  Sender: FDA-Public Use
  Company Number: US-009507513-1402USA000640

PATIENT
  Sex: Male
  Weight: 96.15 kg

DRUGS (1)
  1. JANUVIA [Suspect]
     Active Substance: SITAGLIPTIN PHOSPHATE
     Indication: TYPE 2 DIABETES MELLITUS
     Dosage: UNK, BID
     Route: 048
     Dates: start: 20090401, end: 20110201

REACTIONS (24)
  - Pancreatic carcinoma [Unknown]
  - Bile duct obstruction [Unknown]
  - Pancreatic mass [Unknown]
  - Surgery [Unknown]
  - Dehydration [Unknown]
  - Tachycardia [Unknown]
  - Hypertension [Unknown]
  - Back pain [Not Recovered/Not Resolved]
  - Peptic ulcer [Unknown]
  - Irritable bowel syndrome [Unknown]
  - Amylase increased [Unknown]
  - Constipation [Not Recovered/Not Resolved]
  - Depression [Unknown]
  - Gastrointestinal haemorrhage [Unknown]
  - Pancreatitis [Unknown]
  - Gastrooesophageal reflux disease [Unknown]
  - Anxiety [Unknown]
  - Finger amputation [Unknown]
  - Coronary artery disease [Unknown]
  - Melaena [Unknown]
  - Death [Fatal]
  - Gastric ulcer helicobacter [Unknown]
  - Spinal fusion surgery [Unknown]
  - Pancreaticoduodenectomy [Unknown]

NARRATIVE: CASE EVENT DATE: 2009
